FAERS Safety Report 6883959-2 (Version None)
Quarter: 2010Q3

REPORT INFORMATION
  Report Type: 
  Country: None (occurrence: None)
  Receive Date: 20100729
  Receipt Date: 20100713
  Transmission Date: 20110219
  Serious: No
  Sender: FDA-Public Use
  Company Number: US-B.I. PHARMACEUTICALS,INC./RIDGEFIELD-2010-BP-08049BP

PATIENT
  Sex: Female

DRUGS (3)
  1. ZANTAC 75 [Suspect]
     Indication: NAUSEA
     Dosage: 225 MG
     Route: 048
     Dates: start: 20100703
  2. ALPRAZOLAM [Concomitant]
     Indication: ANXIETY
  3. ASPIRIN [Concomitant]
     Indication: PROPHYLAXIS

REACTIONS (2)
  - ABDOMINAL DISTENSION [None]
  - DRUG INEFFECTIVE [None]
